FAERS Safety Report 5707888-2 (Version None)
Quarter: 2008Q2

REPORT INFORMATION
  Report Type: 
  Country: None (occurrence: None)
  Receive Date: 20080414
  Receipt Date: 20080402
  Transmission Date: 20081010
  Serious: Yes (Disabling)
  Sender: FDA-Public Use
  Company Number: OSCN-NO-0804L-0191

PATIENT
  Age: 37 Year
  Sex: Female

DRUGS (11)
  1. OMNISCAN [Suspect]
     Indication: RENAL IMPAIRMENT
     Dosage: 0.27 MMOL/KG, SINGLE DOSE
     Dates: start: 20000606, end: 20000606
  2. CYCLOSPORINE [Concomitant]
  3. PREDNISOLONE [Concomitant]
  4. AZATHIOPRINE [Concomitant]
  5. DOXAZOSIN MESYLATE [Concomitant]
  6. PERINDOPRIL ERBUMINE [Concomitant]
  7. RAPAMYCIN [Concomitant]
  8. BUMETANIDE [Concomitant]
  9. ATORVASTATIN [Concomitant]
  10. ALFACALCIDOL [Concomitant]
  11. WARFARIN SODIUM [Concomitant]

REACTIONS (3)
  - DRUG TOXICITY [None]
  - NEPHROGENIC SYSTEMIC FIBROSIS [None]
  - NEPHROPATHY TOXIC [None]
